FAERS Safety Report 9470319 (Version 1)
Quarter: 2013Q3

REPORT INFORMATION
  Report Type: Spontaneous
  Country: US (occurrence: US)
  Receive Date: 20130822
  Receipt Date: 20130822
  Transmission Date: 20140515
  Serious: No
  Sender: FDA-Public Use
  Company Number: US-SANOFI-AVENTIS-2012SA078218

PATIENT
  Age: 62 Year
  Sex: Male
  Weight: 97.27 kg

DRUGS (12)
  1. MULTAQ [Suspect]
     Indication: ATRIAL FIBRILLATION
     Route: 048
     Dates: start: 201209
  2. XARELTO [Suspect]
     Indication: ATRIAL FIBRILLATION
     Route: 048
     Dates: start: 201209, end: 20120929
  3. XARELTO [Suspect]
     Indication: CEREBROVASCULAR ACCIDENT PROPHYLAXIS
     Route: 048
     Dates: start: 201209, end: 20120929
  4. XARELTO [Suspect]
     Indication: ATRIAL FIBRILLATION
     Dates: start: 20121001
  5. XARELTO [Suspect]
     Indication: CEREBROVASCULAR ACCIDENT PROPHYLAXIS
     Dates: start: 20121001
  6. COUMADIN [Concomitant]
  7. VALSARTAN [Concomitant]
     Indication: HYPERTENSION
     Route: 048
  8. CLEMASTINE [Concomitant]
     Indication: MULTIPLE ALLERGIES
  9. METAMUCIL [Concomitant]
  10. VITAMIN E [Concomitant]
  11. MINERALS NOS [Concomitant]
  12. CALCIUM/MAGNESIUM [Concomitant]

REACTIONS (7)
  - Irritable bowel syndrome [Recovering/Resolving]
  - Abdominal pain lower [Not Recovered/Not Resolved]
  - Fatigue [Not Recovered/Not Resolved]
  - Lethargy [Recovered/Resolved]
  - Renal pain [Not Recovered/Not Resolved]
  - Headache [Recovered/Resolved]
  - Therapeutic response unexpected [Unknown]
